FAERS Safety Report 4502243-5 (Version None)
Quarter: 2004Q4

REPORT INFORMATION
  Report Type: 
  Country: None (occurrence: None)
  Receive Date: 20041116
  Receipt Date: 20041109
  Transmission Date: 20050328
  Serious: Yes (Hospitalization)
  Sender: FDA-Public Use
  Company Number: US-BRISTOL-MYERS SQUIBB COMPANY-12761284

PATIENT
  Age: 64 Year
  Sex: Male
  Weight: 80 kg

DRUGS (14)
  1. CETUXIMAB [Suspect]
     Indication: OESOPHAGEAL CARCINOMA
     Dosage: THERAPY INITIATED ON 01-OCT-2004.  1-9 WEEKS
     Route: 042
  2. CISPLATIN [Suspect]
     Indication: OESOPHAGEAL CARCINOMA
     Dosage: THERAPY INITIATED ON 01-OCT-2004. GIVEN WKLY, WITH 3RD WK OMITTED (PER PROTOCOL).
     Route: 042
  3. IRINOTECAN [Suspect]
     Indication: OESOPHAGEAL CARCINOMA
     Dosage: THERAPY INITIATED ON 01-OCT-2004. GIVEN WKLY, WITH 3RD WK OMITTED (PER PROTOCOL).
     Route: 042
  4. RADIATION THERAPY [Suspect]
     Indication: OESOPHAGEAL CARCINOMA
     Dosage: THERAPY INITIATED ON 01-OCT-2004.
     Route: 050
  5. ATIVAN [Concomitant]
  6. CLINDAMYCIN HCL [Concomitant]
  7. COMPAZINE [Concomitant]
  8. DECADRON [Concomitant]
  9. HYDROCHLOROTHIAZIDE [Concomitant]
  10. LOMOTIL [Concomitant]
  11. M.V.I. [Concomitant]
  12. MICARDIS [Concomitant]
  13. PROTONIX [Concomitant]
  14. ZOFRAN [Concomitant]

REACTIONS (3)
  - DEHYDRATION [None]
  - FATIGUE [None]
  - HYPOTENSION [None]
